FAERS Safety Report 15719050 (Version 2)
Quarter: 2018Q4

REPORT INFORMATION
  Report Type: Report from Study
  Country: US (occurrence: US)
  Receive Date: 20181213
  Receipt Date: 20181225
  Transmission Date: 20190205
  Serious: Yes (Hospitalization, Other)
  Sender: FDA-Public Use
  Company Number: US-BRISTOL-MYERS SQUIBB COMPANY-BMS-2018-115191

PATIENT
  Age: 59 Year
  Sex: Female
  Weight: 81.4 kg

DRUGS (1)
  1. NIVOLUMAB [Suspect]
     Active Substance: NIVOLUMAB
     Indication: RENAL CELL CARCINOMA
     Dosage: UNK
     Route: 042
     Dates: start: 20180403, end: 20181025

REACTIONS (1)
  - Meningitis aseptic [Not Recovered/Not Resolved]

NARRATIVE: CASE EVENT DATE: 20181121
